FAERS Safety Report 23766448 (Version 1)
Quarter: 2024Q2

REPORT INFORMATION
  Report Type: Spontaneous
  Country: US (occurrence: US)
  Receive Date: 20240422
  Receipt Date: 20240422
  Transmission Date: 20240716
  Serious: Yes (Other)
  Sender: FDA-Public Use
  Company Number: US-NOVOPROD-1205113

PATIENT
  Sex: Female

DRUGS (3)
  1. OZEMPIC [Suspect]
     Active Substance: SEMAGLUTIDE
     Indication: Type 2 diabetes mellitus
     Dosage: 0.25 MG
     Route: 058
     Dates: start: 2023
  2. OZEMPIC [Suspect]
     Active Substance: SEMAGLUTIDE
     Dosage: 1.0 MG
     Route: 058
     Dates: end: 202311
  3. OZEMPIC [Suspect]
     Active Substance: SEMAGLUTIDE
     Dosage: 0.50 MG
     Route: 058

REACTIONS (6)
  - Ejection fraction decreased [Unknown]
  - Urinary tract infection [Recovered/Resolved]
  - Malaise [Recovered/Resolved]
  - Vomiting [Recovered/Resolved]
  - Diarrhoea [Recovered/Resolved]
  - Drug ineffective [Unknown]

NARRATIVE: CASE EVENT DATE: 20230101
